FAERS Safety Report 6278675-4 (Version None)
Quarter: 2009Q3

REPORT INFORMATION
  Report Type: 
  Country: None (occurrence: None)
  Receive Date: 20090722
  Receipt Date: 20090714
  Transmission Date: 20100115
  Serious: Yes (Hospitalization, Other)
  Sender: FDA-Public Use
  Company Number: US-AMGEN-QUU355759

PATIENT
  Sex: Female

DRUGS (1)
  1. ENBREL [Suspect]
     Indication: RHEUMATOID ARTHRITIS
     Route: 058
     Dates: start: 20080701

REACTIONS (9)
  - ARTHRALGIA [None]
  - FALL [None]
  - HIP FRACTURE [None]
  - INFLUENZA [None]
  - MYALGIA [None]
  - NEUROPATHY PERIPHERAL [None]
  - TEARFULNESS [None]
  - UPPER LIMB FRACTURE [None]
  - WRIST FRACTURE [None]
